FAERS Safety Report 24678152 (Version 1)
Quarter: 2024Q4

REPORT INFORMATION
  Report Type: Report from Study
  Country: US (occurrence: US)
  Receive Date: 20241129
  Receipt Date: 20241129
  Transmission Date: 20250115
  Serious: Yes (Other)
  Sender: JOHNSON AND JOHNSON
  Company Number: US-JNJFOC-20241154077

PATIENT
  Age: 57 Year
  Sex: Female

DRUGS (8)
  1. SPRAVATO [Suspect]
     Active Substance: ESKETAMINE
     Indication: Depression
     Dosage: ?84 MG, 1 TOTAL DOSES?
     Route: 045
     Dates: start: 20211216, end: 20211216
  2. SPRAVATO [Suspect]
     Active Substance: ESKETAMINE
     Dosage: ?56 MG, 1 TOTAL DOSES?
     Route: 045
     Dates: start: 20211221, end: 20211221
  3. SPRAVATO [Suspect]
     Active Substance: ESKETAMINE
     Dosage: ?84 MG, 1 TOTAL DOSES?
     Route: 045
     Dates: start: 20211223, end: 20211223
  4. SPRAVATO [Suspect]
     Active Substance: ESKETAMINE
     Dosage: ?56 MG, 1 TOTAL DOSES?
     Route: 045
     Dates: start: 20211228, end: 20211228
  5. SPRAVATO [Suspect]
     Active Substance: ESKETAMINE
     Dosage: ?84 MG, 15 TOTAL DOSES?
     Route: 045
     Dates: start: 20220106, end: 20220414
  6. SPRAVATO [Suspect]
     Active Substance: ESKETAMINE
     Dosage: ?56 MG, 1 TOTAL DOSES?
     Route: 045
     Dates: start: 20220421, end: 20220421
  7. SPRAVATO [Suspect]
     Active Substance: ESKETAMINE
     Dosage: ?84 MG, 82 TOTAL DOSES?
     Route: 045
     Dates: start: 20220428, end: 20240919
  8. SPRAVATO [Suspect]
     Active Substance: ESKETAMINE
     Dosage: ?56 MG, 3 TOTAL DOSES?
     Route: 045
     Dates: start: 20211207, end: 20211214

REACTIONS (1)
  - Adverse event [Unknown]

NARRATIVE: CASE EVENT DATE: 20240101
